FAERS Safety Report 25426358 (Version 1)
Quarter: 2025Q2

REPORT INFORMATION
  Report Type: Spontaneous
  Country: US (occurrence: US)
  Receive Date: 20250612
  Receipt Date: 20250612
  Transmission Date: 20250717
  Serious: No
  Sender: RANBAXY
  Company Number: US-SUN PHARMACEUTICAL INDUSTRIES LTD-2025R1-498144

PATIENT
  Sex: Female

DRUGS (1)
  1. TECHNETIUM TC-99M SULFUR COLLOID [Suspect]
     Active Substance: TECHNETIUM TC-99M SULFUR COLLOID
     Indication: Gastric emptying study
     Route: 042
     Dates: start: 20250212

REACTIONS (2)
  - Flushing [Recovered/Resolved]
  - Throat tightness [Recovered/Resolved]
